FAERS Safety Report 16600334 (Version 8)
Quarter: 2019Q4

REPORT INFORMATION
  Report Type: Report from Study
  Country: US (occurrence: US)
  Receive Date: 20190720
  Receipt Date: 20191225
  Transmission Date: 20200122
  Serious: Yes (Other)
  Sender: FDA-Public Use
  Company Number: US-BRISTOL-MYERS SQUIBB COMPANY-BMS-2019-056692

PATIENT
  Age: 67 Year
  Sex: Male

DRUGS (5)
  1. TEMOZOLOMIDE. [Concomitant]
     Active Substance: TEMOZOLOMIDE
     Indication: PRODUCT USED FOR UNKNOWN INDICATION
     Dosage: UNK
     Route: 065
     Dates: start: 20191206
  2. IPILIMUMAB [Suspect]
     Active Substance: IPILIMUMAB
     Indication: MALIGNANT MELANOMA
     Dosage: UNK, Q3WK
     Route: 042
  3. PANTOPRAZOLE [Concomitant]
     Active Substance: PANTOPRAZOLE
     Indication: PRODUCT USED FOR UNKNOWN INDICATION
     Dosage: UNK
     Route: 065
  4. NIVOLUMAB [Suspect]
     Active Substance: NIVOLUMAB
     Indication: MALIGNANT MELANOMA
     Dosage: UNK, Q3WK
     Route: 042
  5. VOTRIENT [Suspect]
     Active Substance: PAZOPANIB HYDROCHLORIDE
     Indication: PRODUCT USED FOR UNKNOWN INDICATION
     Dosage: 3 PILLS, QD
     Route: 065

REACTIONS (37)
  - Stress [Unknown]
  - Food intolerance [Unknown]
  - Flatulence [Unknown]
  - Wrist fracture [Not Recovered/Not Resolved]
  - Diarrhoea [Recovered/Resolved]
  - Haemorrhoids [Unknown]
  - Malaise [Unknown]
  - Irritability [Unknown]
  - Taste disorder [Not Recovered/Not Resolved]
  - Vomiting [Not Recovered/Not Resolved]
  - Nasopharyngitis [Unknown]
  - Appetite disorder [Not Recovered/Not Resolved]
  - Neoplasm [Unknown]
  - Pain [Unknown]
  - Retching [Unknown]
  - Weight decreased [Not Recovered/Not Resolved]
  - Joint swelling [Not Recovered/Not Resolved]
  - Dysphonia [Recovered/Resolved]
  - Cataract [Unknown]
  - Hypothyroidism [Recovering/Resolving]
  - Fatigue [Unknown]
  - Rash pruritic [Recovered/Resolved]
  - Gastric disorder [Unknown]
  - Bruxism [Unknown]
  - Rash [Recovering/Resolving]
  - Lung neoplasm [Unknown]
  - Dehydration [Unknown]
  - Nausea [Recovering/Resolving]
  - Weight fluctuation [Not Recovered/Not Resolved]
  - Gastrooesophageal reflux disease [Not Recovered/Not Resolved]
  - Protein total decreased [Unknown]
  - Neoplasm progression [Recovering/Resolving]
  - Miliaria [Unknown]
  - Headache [Unknown]
  - Arthralgia [Not Recovered/Not Resolved]
  - Gingival disorder [Unknown]
  - Urinary tract disorder [Unknown]

NARRATIVE: CASE EVENT DATE: 20190705
